FAERS Safety Report 18106836 (Version 3)
Quarter: 2021Q1

REPORT INFORMATION
  Report Type: Spontaneous
  Country: US (occurrence: US)
  Receive Date: 20200803
  Receipt Date: 20210113
  Transmission Date: 20210419
  Serious: No
  Sender: FDA-Public Use
  Company Number: US-PFIZER INC-2020020578

PATIENT
  Age: 4 Year
  Sex: Male
  Weight: 14.51 kg

DRUGS (2)
  1. GENOTROPIN [Suspect]
     Active Substance: SOMATROPIN
     Dosage: 0.6 MG, 1X/DAY (NIGHTLY) (7DAYS/WK)
     Route: 058
     Dates: start: 20200622, end: 202012
  2. GENOTROPIN [Suspect]
     Active Substance: SOMATROPIN
     Indication: GROWTH HORMONE DEFICIENCY
     Dosage: 0.26 MG, DAILY

REACTIONS (2)
  - Product prescribing error [Unknown]
  - Injection site pain [Unknown]
